FAERS Safety Report 20573798 (Version 1)
Quarter: 2022Q1

REPORT INFORMATION
  Report Type: Spontaneous
  Country: ES (occurrence: ES)
  Receive Date: 20220309
  Receipt Date: 20220309
  Transmission Date: 20220423
  Serious: Yes (Other)
  Sender: FDA-Public Use
  Company Number: ES-002147023-NVSC2022ES040719

PATIENT
  Sex: Male

DRUGS (2)
  1. PEMETREXED [Suspect]
     Active Substance: PEMETREXED
     Indication: Lung adenocarcinoma stage IV
     Dosage: UNK UNK, OTHER (EVERY 21 DAYS)
     Route: 065
     Dates: start: 202101
  2. CISPLATIN [Concomitant]
     Active Substance: CISPLATIN
     Indication: Product used for unknown indication
     Dosage: UNK UNK, OTHER (EVERY 21 DAYS)
     Route: 065
     Dates: start: 202101

REACTIONS (21)
  - Immunodeficiency [Unknown]
  - Memory impairment [Recovering/Resolving]
  - Glossitis [Unknown]
  - Delirium [Unknown]
  - Excessive skin [Unknown]
  - Cognitive disorder [Recovering/Resolving]
  - Psychotic disorder [Unknown]
  - Septic rash [Unknown]
  - Behaviour disorder [Unknown]
  - Incoherent [Unknown]
  - Rhinitis [Unknown]
  - Bone marrow failure [Unknown]
  - Urticaria [Unknown]
  - Oedema peripheral [Unknown]
  - Blood creatinine increased [Unknown]
  - Lacrimation increased [Unknown]
  - Diarrhoea [Unknown]
  - Anaemia [Unknown]
  - Mucosal inflammation [Unknown]
  - Renal failure [Unknown]
  - Illness [Unknown]

NARRATIVE: CASE EVENT DATE: 20211001
